FAERS Safety Report 16461040 (Version 1)
Quarter: 2019Q2

REPORT INFORMATION
  Report Type: Spontaneous
  Country: JP (occurrence: JP)
  Receive Date: 20190621
  Receipt Date: 20190621
  Transmission Date: 20190711
  Serious: Yes (Death, Other)
  Sender: FDA-Public Use
  Company Number: JP-TEVA-2019-JP-1064154

PATIENT
  Age: 5 Decade
  Sex: Male

DRUGS (2)
  1. FLUNITRAZEPAM [Concomitant]
     Active Substance: FLUNITRAZEPAM
     Route: 065
  2. OLANZAPINE. [Suspect]
     Active Substance: OLANZAPINE
     Dosage: 50 EMPTY CAPSULES
     Route: 065

REACTIONS (7)
  - Pneumomediastinum [Unknown]
  - Hyperglycaemia [Unknown]
  - Ketoacidosis [Fatal]
  - Pneumonia [Unknown]
  - Overdose [Fatal]
  - Toxicity to various agents [Fatal]
  - Subcutaneous emphysema [Unknown]
